FAERS Safety Report 25188738 (Version 1)
Quarter: 2025Q2

REPORT INFORMATION
  Report Type: Spontaneous
  Country: US (occurrence: US)
  Receive Date: 20250411
  Receipt Date: 20250411
  Transmission Date: 20250717
  Serious: No
  Sender: NOVITIUM PHARMA
  Company Number: US-NOVITIUMPHARMA-2025USNVP00844

PATIENT
  Age: 37 Year
  Sex: Female
  Weight: 107 kg

DRUGS (4)
  1. PREDNISONE [Suspect]
     Active Substance: PREDNISONE
     Indication: Nasal decongestion therapy
     Route: 048
     Dates: start: 20250314, end: 20250323
  2. PRISTIQ EXTENDED-RELEASE [Concomitant]
     Active Substance: DESVENLAFAXINE SUCCINATE
  3. PROPRANOLOL [Concomitant]
     Active Substance: PROPRANOLOL HYDROCHLORIDE
  4. PRAZOSIN [Concomitant]
     Active Substance: PRAZOSIN

REACTIONS (6)
  - Mania [Recovered/Resolved]
  - Feeling abnormal [Recovered/Resolved]
  - Derealisation [Recovered/Resolved]
  - Disturbance in attention [Recovered/Resolved]
  - Paranoia [Recovered/Resolved]
  - Feeling abnormal [Recovered/Resolved]

NARRATIVE: CASE EVENT DATE: 20250321
